FAERS Safety Report 23432404 (Version 2)
Quarter: 2024Q1

REPORT INFORMATION
  Report Type: Spontaneous
  Country: FR (occurrence: FR)
  Receive Date: 20240123
  Receipt Date: 20240213
  Transmission Date: 20240410
  Serious: Yes (Hospitalization)
  Sender: FDA-Public Use
  Company Number: None

PATIENT
  Age: 50 Year
  Sex: Female

DRUGS (2)
  1. METFORMIN [Interacting]
     Active Substance: METFORMIN HYDROCHLORIDE
     Indication: Diabetes mellitus
     Dosage: 1050 MILLIGRAM, QD
     Route: 048
  2. OMNIPAQUE [Interacting]
     Active Substance: IOHEXOL
     Indication: Angiogram
     Dosage: 1 DOSAGE FORM, QD 1 TOTAL
     Route: 042
     Dates: start: 20231218, end: 20231218

REACTIONS (3)
  - Acute kidney injury [Recovered/Resolved]
  - Hyperlactacidaemia [Recovered/Resolved]
  - Drug interaction [Recovered/Resolved]

NARRATIVE: CASE EVENT DATE: 20231220
